FAERS Safety Report 18341173 (Version 1)
Quarter: 2020Q4

REPORT INFORMATION
  Report Type: Spontaneous
  Country: HR (occurrence: HR)
  Receive Date: 20201003
  Receipt Date: 20201003
  Transmission Date: 20210113
  Serious: Yes (Other)
  Sender: FDA-Public Use
  Company Number: HR-TEVA-2020-HR-1834265

PATIENT
  Age: 51 Year
  Sex: Male

DRUGS (3)
  1. LOQUEN [Suspect]
     Active Substance: QUETIAPINE FUMARATE
     Dosage: 6000 MG
     Route: 048
     Dates: start: 202008, end: 202008
  2. LOQUEN [Suspect]
     Active Substance: QUETIAPINE FUMARATE
     Dosage: 1500 MG
     Route: 048
     Dates: start: 202008, end: 202008
  3. PRAZINE (PROMAZINE HYDROCHLORIDE) [Suspect]
     Active Substance: PROMAZINE HYDROCHLORIDE
     Dosage: 5000 MG
     Route: 048
     Dates: start: 202008, end: 202008

REACTIONS (5)
  - Aggression [Unknown]
  - Intentional overdose [Unknown]
  - Suicide attempt [Unknown]
  - Loss of consciousness [Unknown]
  - Somnolence [Unknown]

NARRATIVE: CASE EVENT DATE: 202008
